FAERS Safety Report 4993607-4 (Version None)
Quarter: 2006Q2

REPORT INFORMATION
  Report Type: 
  Country: None (occurrence: None)
  Receive Date: 20060505
  Receipt Date: 20060426
  Transmission Date: 20061013
  Serious: Yes (Hospitalization, Other)
  Sender: FDA-Public Use
  Company Number: NSADSS2001001657

PATIENT
  Sex: Male

DRUGS (9)
  1. REMICADE [Suspect]
     Route: 041
     Dates: start: 20000713
  2. REMICADE [Suspect]
     Route: 041
     Dates: start: 20000713
  3. REMICADE [Suspect]
     Indication: CROHN'S DISEASE
     Route: 041
     Dates: start: 20000713
  4. AZATHIOPRINE [Concomitant]
     Route: 048
  5. SALOFALK SUPPOSITORIES [Concomitant]
     Route: 054
  6. FERRO SANOL [Concomitant]
     Route: 048
  7. FERRO SANOL [Concomitant]
     Route: 048
  8. FERRO SANOL [Concomitant]
     Route: 048
  9. FERRO SANOL [Concomitant]
     Indication: DRUG USE FOR UNKNOWN INDICATION
     Route: 048

REACTIONS (3)
  - ASTHENIA [None]
  - FATIGUE [None]
  - TUBERCULOSIS [None]
